FAERS Safety Report 19293004 (Version 1)
Quarter: 2021Q2

REPORT INFORMATION
  Report Type: Spontaneous
  Country: US (occurrence: US)
  Receive Date: 20210522
  Receipt Date: 20210522
  Transmission Date: 20210717
  Serious: No
  Sender: FDA-Public Use
  Company Number: None

PATIENT
  Age: 31 Year
  Sex: Female
  Weight: 56.48 kg

DRUGS (9)
  1. ZYRTEC [Concomitant]
     Active Substance: CETIRIZINE HYDROCHLORIDE
  2. CLONIDINE. [Concomitant]
     Active Substance: CLONIDINE
  3. NEW BIRTH CONTROL PILLS [Concomitant]
  4. FAMOTIDINE. [Suspect]
     Active Substance: FAMOTIDINE
     Indication: GASTROOESOPHAGEAL REFLUX DISEASE
     Dosage: ?          QUANTITY:25 TABLET(S);?
     Route: 048
  5. MOMETASOME [Concomitant]
  6. VITAMIN D [Concomitant]
     Active Substance: VITAMIN D NOS
  7. CLARITIN [Concomitant]
     Active Substance: LORATADINE
  8. FAMOTIDINE. [Suspect]
     Active Substance: FAMOTIDINE
     Indication: IRRITABLE BOWEL SYNDROME
     Dosage: ?          QUANTITY:25 TABLET(S);?
     Route: 048
  9. LEVONORGESTREL?ETHINYL ESTRADIOL [Concomitant]

REACTIONS (5)
  - Chills [None]
  - Paraesthesia [None]
  - Heart rate increased [None]
  - Tremor [None]
  - Anxiety [None]

NARRATIVE: CASE EVENT DATE: 20210522
